FAERS Safety Report 8095370-X (Version None)
Quarter: 2011Q4

REPORT INFORMATION
  Report Type: 
  Country: None (occurrence: None)
  Receive Date: 20111222
  Receipt Date: 20111114
  Transmission Date: 20120403
  Serious: Yes (Death, Other)
  Sender: FDA-Public Use
  Company Number: UTC-012358

PATIENT
  Age: 33 Year
  Sex: Male
  Weight: 100 kg

DRUGS (3)
  1. TYVASO [Suspect]
     Indication: PULMONARY ARTERIAL HYPERTENSION
     Dosage: 216 MCG (54 MCG,4 IN 1 D),INHALATION
     Route: 055
     Dates: start: 20101105
  2. ADCIRCA [Concomitant]
  3. TRACLEER [Concomitant]

REACTIONS (2)
  - PULMONARY ARTERIAL HYPERTENSION [None]
  - INTERSTITIAL LUNG DISEASE [None]
